APPROVED DRUG PRODUCT: METOPROLOL SUCCINATE
Active Ingredient: METOPROLOL SUCCINATE
Strength: EQ 200MG TARTRATE
Dosage Form/Route: TABLET, EXTENDED RELEASE;ORAL
Application: A077298 | Product #002
Applicant: ACTAVIS LABORATORIES FL INC
Approved: Apr 15, 2010 | RLD: No | RS: No | Type: DISCN